FAERS Safety Report 8460936-1 (Version None)
Quarter: 2012Q2

REPORT INFORMATION
  Report Type: 
  Country: None (occurrence: None)
  Receive Date: 20120625
  Receipt Date: 20120618
  Transmission Date: 20120825
  Serious: Yes (Hospitalization)
  Sender: FDA-Public Use
  Company Number: US-BIOGENIDEC-2012BI021570

PATIENT
  Sex: Female

DRUGS (4)
  1. TYSABRI [Concomitant]
     Indication: MULTIPLE SCLEROSIS
     Route: 042
     Dates: start: 20050101, end: 20050201
  2. AVONEX [Suspect]
     Route: 030
     Dates: start: 20120508
  3. SLEEPING MEDICATION (NOS) [Concomitant]
  4. AVONEX [Suspect]
     Indication: MULTIPLE SCLEROSIS
     Route: 030
     Dates: start: 20000801, end: 20110531

REACTIONS (2)
  - ADVERSE DRUG REACTION [None]
  - INSOMNIA [None]
